FAERS Safety Report 8941904 (Version 2)
Quarter: 2014Q2

REPORT INFORMATION
  Report Type: Spontaneous
  Country: US (occurrence: US)
  Receive Date: 20121203
  Receipt Date: 20131024
  Transmission Date: 20141212
  Serious: Yes (Other)
  Sender: FDA-Public Use
  Company Number: US-PFIZER INC-2012299515

PATIENT
  Age: 48 Year
  Sex: Female
  Weight: 50.34 kg

DRUGS (10)
  1. DILANTIN-125 [Suspect]
     Indication: CONVULSION
     Dosage: 100 MG, FIVE TIMES A DAY
     Route: 048
     Dates: start: 20121101, end: 20121105
  2. DILANTIN-125 [Suspect]
     Dosage: 100 MG, 1X/DAY
     Dates: start: 20121106, end: 20121115
  3. ZOLOFT [Concomitant]
     Dosage: UNK, 2X/DAY
  4. BUSPIRONE [Concomitant]
     Dosage: UNK, 2X/DAY
  5. XANAX [Concomitant]
     Dosage: 2 MG, 4X/DAY
  6. AMBIEN [Concomitant]
     Dosage: UNK, 1X/DAY
  7. MIRAPEX [Concomitant]
     Dosage: UNK, 1X/DAY
  8. POLYETHYLENE GLYCOL 3350 [Concomitant]
     Dosage: UNK, THREE CAPSULE ONCE A DAY
  9. SEROQUEL XR [Concomitant]
     Dosage: UNK, 1X/DAY
  10. SPIRIVA [Concomitant]
     Dosage: UNK, 1X/DAY

REACTIONS (2)
  - Convulsion [Recovered/Resolved]
  - Incorrect dose administered [Unknown]
